FAERS Safety Report 20193380 (Version 2)
Quarter: 2021Q4

REPORT INFORMATION
  Report Type: Spontaneous
  Country: GB (occurrence: GB)
  Receive Date: 20211216
  Receipt Date: 20211228
  Transmission Date: 20220303
  Serious: Yes (Disabling, Other)
  Sender: FDA-Public Use
  Company Number: None

PATIENT
  Age: 84 Year
  Sex: Female
  Weight: 60 kg

DRUGS (21)
  1. MONTELUKAST [Suspect]
     Active Substance: MONTELUKAST SODIUM
     Indication: Product used for unknown indication
     Dosage: 1 TABLET ONCE A DAY, TRIAL OVER 3M
     Route: 065
     Dates: start: 20211101, end: 20211118
  2. CALCIUM CARBONATE\SODIUM ALGINATE\SODIUM BICARBONATE [Concomitant]
     Active Substance: CALCIUM CARBONATE\SODIUM ALGINATE\SODIUM BICARBONATE
     Indication: Product used for unknown indication
     Dosage: 10 ML AFTER MEALS AND AT BEDTIME
     Dates: start: 20211028
  3. AMITRIPTYLINE [Concomitant]
     Active Substance: AMITRIPTYLINE
     Indication: Product used for unknown indication
     Dosage: NIGHTLY
     Route: 065
     Dates: start: 20211119
  4. ATORVASTATIN [Concomitant]
     Active Substance: ATORVASTATIN
     Indication: Product used for unknown indication
     Dosage: NIGHTLY
     Route: 065
     Dates: start: 20210927
  5. FLUTICASONE FUROATE [Concomitant]
     Active Substance: FLUTICASONE FUROATE
     Indication: Product used for unknown indication
     Dosage: 27.5MICROGRAMS/DOSE NASAL SPRAY: 1 SPRAY INTO EACH NOSTRIL ONCE DAILY
     Route: 045
     Dates: start: 20210923
  6. BENZYDAMINE [Concomitant]
     Active Substance: BENZYDAMINE
     Indication: Product used for unknown indication
     Dosage: GARGLE 15 ML EVERY 1.5 TO 3 HOURS
     Route: 065
     Dates: start: 20211022
  7. BISOPROLOL [Concomitant]
     Active Substance: BISOPROLOL
     Indication: Product used for unknown indication
     Dosage: 1 DAILY
     Dates: start: 20210927
  8. BUTYLSCOPOLAMINE BROMIDE [Concomitant]
     Active Substance: BUTYLSCOPOLAMINE BROMIDE
     Indication: Product used for unknown indication
     Dosage: UP TO THREE TIMES A DAY
     Dates: start: 20211022
  9. EVACAL D3 CHEWABLE [Concomitant]
     Indication: Product used for unknown indication
     Dosage: 1 DOSAGE FORM PER DAY
     Dates: start: 20211022
  10. FLUCLOXACILLIN [Concomitant]
     Active Substance: FLUCLOXACILLIN
     Indication: Product used for unknown indication
     Dosage: 1 CAPSULE FOUR TIMES A DAY
     Dates: start: 20211126
  11. HYDROXOCOBALAMIN [Concomitant]
     Active Substance: HYDROXOCOBALAMIN
     Indication: Product used for unknown indication
     Dosage: 1MG/1ML IMMEDIATELY
     Dates: start: 20211005
  12. LEVOTHYROXINE [Concomitant]
     Active Substance: LEVOTHYROXINE
     Indication: Product used for unknown indication
     Dosage: 1 DAILY
     Dates: start: 20210927, end: 20211119
  13. LOPERAMIDE [Concomitant]
     Active Substance: LOPERAMIDE
     Indication: Product used for unknown indication
     Dosage: 1 UP TO FOUR TIMES A DAY
     Dates: start: 20210927, end: 20211130
  14. MIRTAZAPINE [Concomitant]
     Active Substance: MIRTAZAPINE
     Indication: Product used for unknown indication
     Dosage: 1 TABLET ONCE A DAY AT NIGHT
     Dates: start: 20210927
  15. QUETIAPINE [Concomitant]
     Active Substance: QUETIAPINE
     Indication: Product used for unknown indication
     Dosage: 1 BD
     Dates: start: 20210927
  16. VENTOLIN [Concomitant]
     Active Substance: ALBUTEROL SULFATE
     Indication: Product used for unknown indication
     Dosage: 2 PUFFS BD AND PRN
     Dates: start: 20211028
  17. WARFARIN [Concomitant]
     Active Substance: WARFARIN
     Indication: Product used for unknown indication
     Dosage: AS DIRECTED
     Route: 065
     Dates: start: 20210923, end: 20211119
  18. BETAHISTINE [Concomitant]
     Active Substance: BETAHISTINE
     Indication: Product used for unknown indication
     Dosage: UNKNOWN
  19. LOSARTAN [Concomitant]
     Active Substance: LOSARTAN
     Indication: Product used for unknown indication
     Dosage: TRIAL OVER 2-3M
  20. SALBUTAMOL BASE [Concomitant]
     Indication: Product used for unknown indication
     Dosage: UNKNOWN
  21. FLUTICASONE PROPIONATE\SALMETEROL XINAFOATE [Concomitant]
     Active Substance: FLUTICASONE PROPIONATE\SALMETEROL XINAFOATE
     Indication: Product used for unknown indication
     Dosage: UNKNOWN

REACTIONS (6)
  - Drug hypersensitivity [Recovered/Resolved]
  - Nausea [Unknown]
  - Akathisia [Unknown]
  - Pruritus [Unknown]
  - Vision blurred [Unknown]
  - Malaise [Unknown]

NARRATIVE: CASE EVENT DATE: 20211111
